FAERS Safety Report 6721479-6 (Version None)
Quarter: 2010Q2

REPORT INFORMATION
  Report Type: 
  Country: None (occurrence: None)
  Receive Date: 20100512
  Receipt Date: 20100503
  Transmission Date: 20101027
  Serious: Yes (Other)
  Sender: FDA-Public Use
  Company Number: US-ASTRAZENECA-2010SE19933

PATIENT
  Age: 28 Year
  Sex: Male

DRUGS (12)
  1. SEROQUEL [Suspect]
     Indication: ANXIETY
     Route: 048
     Dates: start: 20100501, end: 20100502
  2. SEROQUEL [Suspect]
     Indication: BIPOLAR I DISORDER
     Route: 048
     Dates: start: 20100501, end: 20100502
  3. SEROQUEL [Suspect]
     Indication: DEPRESSION
     Route: 048
     Dates: start: 20100501, end: 20100502
  4. SEROQUEL [Suspect]
     Route: 048
     Dates: start: 20100501
  5. SEROQUEL [Suspect]
     Route: 048
     Dates: start: 20100501
  6. SEROQUEL [Suspect]
     Route: 048
     Dates: start: 20100501
  7. SEROQUEL [Suspect]
     Route: 048
  8. SEROQUEL [Suspect]
     Route: 048
  9. SEROQUEL [Suspect]
     Route: 048
  10. CLONAZEPAM [Concomitant]
  11. PEXEVA [Concomitant]
  12. LAMICTAL [Concomitant]
     Indication: BIPOLAR DISORDER
     Dates: start: 20090401

REACTIONS (6)
  - DRUG DOSE OMISSION [None]
  - FEELING ABNORMAL [None]
  - LETHARGY [None]
  - SOMNOLENCE [None]
  - SUICIDAL IDEATION [None]
  - TREATMENT NONCOMPLIANCE [None]
